FAERS Safety Report 7647111-5 (Version None)
Quarter: 2011Q3

REPORT INFORMATION
  Report Type: 
  Country: None (occurrence: None)
  Receive Date: 20110801
  Receipt Date: 20110721
  Transmission Date: 20111222
  Serious: Yes (Hospitalization, Other)
  Sender: FDA-Public Use
  Company Number: US-ROCHE-731063

PATIENT
  Sex: Male
  Weight: 70.3 kg

DRUGS (1)
  1. ACCUTANE [Suspect]
     Indication: ACNE
     Dosage: APPROX. FOR 12-18 MONTHS
     Route: 065
     Dates: start: 19930101, end: 19940101

REACTIONS (4)
  - DEPRESSION [None]
  - COLITIS ULCERATIVE [None]
  - GASTROINTESTINAL INJURY [None]
  - INTESTINAL OBSTRUCTION [None]
